FAERS Safety Report 7329011-3 (Version None)
Quarter: 2011Q1

REPORT INFORMATION
  Report Type: 
  Country: None (occurrence: None)
  Receive Date: 20110303
  Receipt Date: 20110303
  Transmission Date: 20110831
  Serious: Yes (Other)
  Sender: FDA-Public Use
  Company Number: CA-AMGEN-CANSP2011005184

PATIENT
  Age: 81 Year
  Sex: Female

DRUGS (12)
  1. PANTOLOC                           /01263201/ [Concomitant]
  2. PREDNISONE TAB [Concomitant]
     Dosage: 5 MG, QD
     Route: 048
  3. TYLENOL EXTRA STRENGTH NO 4 [Concomitant]
     Route: 048
  4. PROLIA [Suspect]
     Indication: OSTEOPOROSIS
     Dosage: 60 MG, Q6MO
     Route: 058
     Dates: start: 20110118
  5. TYLENOL W/ CODEINE NO. 3 [Concomitant]
     Route: 048
  6. LIPITOR [Concomitant]
     Dosage: UNK UNK, QD
     Route: 048
  7. LASIX [Concomitant]
  8. NITROFURANTOIN [Concomitant]
  9. VASOTEC [Concomitant]
     Dosage: 5 MG, QD
     Route: 048
  10. ASPIRIN [Concomitant]
     Dosage: UNK UNK, QD
     Route: 048
  11. COUMADIN [Concomitant]
     Dosage: 3.85 MG, QD
     Route: 048
  12. INSULIN [Concomitant]

REACTIONS (4)
  - PAIN IN EXTREMITY [None]
  - PELVIC PAIN [None]
  - MUSCLE SPASMS [None]
  - GAIT DISTURBANCE [None]
